FAERS Safety Report 25919101 (Version 1)
Quarter: 2025Q4

REPORT INFORMATION
  Report Type: Spontaneous
  Country: US (occurrence: None)
  Receive Date: 20251013
  Receipt Date: 20251013
  Transmission Date: 20260118
  Serious: Yes (Other)
  Sender: FDA-CTU
  Company Number: None

PATIENT
  Age: 34 Year
  Sex: Female

DRUGS (1)
  1. XOLAIR PFS [Suspect]
     Active Substance: OMALIZUMAB
     Indication: Idiopathic urticaria
     Dosage: 300MG VERY 2 WEEKS ?

REACTIONS (6)
  - Wrong technique in product usage process [None]
  - Urticaria [None]
  - Dysphonia [None]
  - Dyspnoea [None]
  - Swelling face [None]
  - Hypersensitivity [None]
